FAERS Safety Report 21136825 (Version 1)
Quarter: 2022Q3

REPORT INFORMATION
  Report Type: Spontaneous
  Country: US (occurrence: US)
  Receive Date: 20220727
  Receipt Date: 20220727
  Transmission Date: 20221027
  Serious: Yes (Other)
  Sender: FDA-Public Use
  Company Number: US-BRISTOL-MYERS SQUIBB COMPANY-2022-077203

PATIENT
  Age: 75 Year
  Sex: Male

DRUGS (1)
  1. NIVOLUMAB [Suspect]
     Active Substance: NIVOLUMAB
     Indication: Product used for unknown indication
     Route: 065
     Dates: end: 202001

REACTIONS (4)
  - Type 1 diabetes mellitus [Recovered/Resolved]
  - Lichen planus [Recovered/Resolved]
  - Acute kidney injury [Recovered/Resolved]
  - Drug-induced liver injury [Recovered/Resolved]
